FAERS Safety Report 25999552 (Version 1)
Quarter: 2025Q4

REPORT INFORMATION
  Report Type: Spontaneous
  Country: CA (occurrence: CA)
  Receive Date: 20251105
  Receipt Date: 20251105
  Transmission Date: 20260118
  Serious: Yes (Hospitalization, Other)
  Sender: AUROBINDO
  Company Number: CA-AUROBINDO-AUR-APL-2025-055518

PATIENT
  Age: 14 Year
  Sex: Female
  Weight: 82 kg

DRUGS (2)
  1. AZITHROMYCIN [Suspect]
     Active Substance: AZITHROMYCIN
     Indication: Product used for unknown indication
     Dosage: 500 MILLIGRAM, ONCE A DAY
     Route: 042
  2. AZITHROMYCIN [Suspect]
     Active Substance: AZITHROMYCIN
     Dosage: 250 MILLIGRAM, ONCE A DAY
     Route: 042

REACTIONS (4)
  - Electrocardiogram QT prolonged [Not Recovered/Not Resolved]
  - Arrhythmia [Not Recovered/Not Resolved]
  - Cardiac arrest [Not Recovered/Not Resolved]
  - Cardioversion [Not Recovered/Not Resolved]
